FAERS Safety Report 8564037-3 (Version None)
Quarter: 2012Q3

REPORT INFORMATION
  Report Type: 
  Country: None (occurrence: None)
  Receive Date: 20120803
  Receipt Date: 20120731
  Transmission Date: 20120928
  Serious: Yes (Death, Other)
  Sender: FDA-Public Use
  Company Number: PHHY2012JP060395

PATIENT
  Age: 35 Year
  Sex: Female

DRUGS (8)
  1. CYCLOSPORINE [Suspect]
     Indication: PROPHYLAXIS AGAINST GRAFT VERSUS HOST DISEASE
  2. ANTIBIOTICS [Concomitant]
  3. METHOTREXATE [Suspect]
     Indication: PROPHYLAXIS AGAINST GRAFT VERSUS HOST DISEASE
  4. CYTARABINE [Concomitant]
     Indication: BONE MARROW CONDITIONING REGIMEN
  5. BUSULFAN [Concomitant]
     Indication: BONE MARROW CONDITIONING REGIMEN
  6. FLUDARABINE PHOSPHATE [Concomitant]
     Indication: BONE MARROW CONDITIONING REGIMEN
  7. ACYCLOVIR [Concomitant]
  8. IMMUNE GLOBULIN NOS [Concomitant]

REACTIONS (3)
  - PNEUMONIA BACTERIAL [None]
  - BONE MARROW TRANSPLANT REJECTION [None]
  - NEUTROPENIA [None]
